FAERS Safety Report 18712580 (Version 1)
Quarter: 2021Q1

REPORT INFORMATION
  Report Type: Spontaneous
  Country: US (occurrence: US)
  Receive Date: 20210107
  Receipt Date: 20210107
  Transmission Date: 20210419
  Serious: No
  Sender: FDA-Public Use
  Company Number: US-ELI_LILLY_AND_COMPANY-US202012006927

PATIENT
  Age: 23 Year
  Sex: Female

DRUGS (3)
  1. EMGALITY [Suspect]
     Active Substance: GALCANEZUMAB-GNLM
     Indication: MIGRAINE
     Dosage: UNK UNK, UNKNOWN
     Route: 065
  2. REYVOW [Concomitant]
     Active Substance: LASMIDITAN
     Indication: MIGRAINE
  3. REYVOW [Concomitant]
     Active Substance: LASMIDITAN
     Indication: TRIGEMINAL NEURALGIA
     Dosage: 50 MG, UNKNOWN
     Route: 065

REACTIONS (2)
  - Migraine [Unknown]
  - Arthralgia [Unknown]
